FAERS Safety Report 4652037-5 (Version None)
Quarter: 2005Q2

REPORT INFORMATION
  Report Type: 
  Country: None (occurrence: None)
  Receive Date: 20050502
  Receipt Date: 20050502
  Transmission Date: 20051028
  Serious: Yes (Death)
  Sender: FDA-Public Use
  Company Number: None

PATIENT
  Sex: Female
  Weight: 36.1063 kg

DRUGS (8)
  1. COUMADIN [Suspect]
     Indication: ATRIAL FIBRILLATION
     Dosage: 2MG (ALTER QD)
     Dates: start: 20021115, end: 20041229
  2. JANTOVEN [Suspect]
     Dosage: 3MG  (ALTER QD)
     Dates: start: 20041229
  3. CELEBREX [Concomitant]
  4. LANOXIN [Concomitant]
  5. LEVOTHROID [Concomitant]
  6. LISINOPRIL [Concomitant]
  7. LASIX [Concomitant]
  8. MICRO-K [Concomitant]

REACTIONS (4)
  - FALL [None]
  - HYPOPROTHROMBINAEMIA [None]
  - INTERNATIONAL NORMALISED RATIO ABNORMAL [None]
  - SUBARACHNOID HAEMORRHAGE [None]
